FAERS Safety Report 4785759-6 (Version None)
Quarter: 2005Q3

REPORT INFORMATION
  Report Type: 
  Country: None (occurrence: None)
  Receive Date: 20050929
  Receipt Date: 20050915
  Transmission Date: 20060218
  Serious: Yes (Hospitalization)
  Sender: FDA-Public Use
  Company Number: 2005BI015675

PATIENT
  Age: 59 Year
  Sex: Female

DRUGS (5)
  1. AVONEX [Suspect]
     Indication: MULTIPLE SCLEROSIS
     Dosage: 30 UG; QW; IM
     Route: 030
     Dates: start: 19970101
  2. AVONEX [Suspect]
     Indication: MULTIPLE SCLEROSIS
     Dosage: 30 UG; QW; IM
     Route: 030
  3. TEGRETOL [Concomitant]
  4. BACLOFEN [Concomitant]
  5. ATIVAN [Concomitant]

REACTIONS (4)
  - ARTHRITIS [None]
  - FALL [None]
  - HIP FRACTURE [None]
  - SPINAL OSTEOARTHRITIS [None]
